FAERS Safety Report 22171718 (Version 1)
Quarter: 2023Q2

REPORT INFORMATION
  Report Type: Spontaneous
  Country: US (occurrence: US)
  Receive Date: 20230404
  Receipt Date: 20230404
  Transmission Date: 20230722
  Serious: No
  Sender: FDA-Public Use
  Company Number: US-GALDERMA-US2023003087

PATIENT

DRUGS (10)
  1. PROACTIV MD ADAPALENE ACNE TREATMENT [Suspect]
     Active Substance: ADAPALENE
     Indication: Acne
     Dosage: 1 DOSAGE FORM, QD, AT NIGHT, PEA SIZE
     Route: 061
     Dates: start: 202207
  2. PROACTIV MD ADAPALENE ACNE TREATMENT [Suspect]
     Active Substance: ADAPALENE
     Indication: Scar
  3. Proactiv MD Ultra Gentle Cleanser [Concomitant]
     Indication: Acne
     Dosage: 1 DOSAGE FORM, BID, APPLIED ON FACE
     Route: 061
     Dates: start: 202207
  4. Proactiv MD Ultra Gentle Cleanser [Concomitant]
     Indication: Scar
  5. Proactiv MD Ultra Hydrating Moisturizer [Concomitant]
     Indication: Acne
     Dosage: 1 DOSAGE FORM, BID, APPLIED ON FACE
     Route: 061
     Dates: start: 202207
  6. Proactiv MD Ultra Hydrating Moisturizer [Concomitant]
     Indication: Scar
  7. Proactiv Post Acne Dark Mark Relief [Concomitant]
     Indication: Acne
     Dosage: 1 DOSAGE FORM, BID, APPLIED ON FACE
     Route: 061
     Dates: start: 202207
  8. Proactiv Post Acne Dark Mark Relief [Concomitant]
     Indication: Scar
  9. Proactiv Post Acne Scar Gel [Concomitant]
     Indication: Acne
     Dosage: 1 DOSAGE FORM, BID, APPLIED ON FACE
     Route: 061
     Dates: start: 202207
  10. Proactiv Post Acne Scar Gel [Concomitant]
     Indication: Scar

REACTIONS (1)
  - Drug ineffective [Unknown]
